FAERS Safety Report 9782965 (Version 1)
Quarter: 2013Q4

REPORT INFORMATION
  Report Type: Spontaneous
  Country: US (occurrence: None)
  Receive Date: 20131224
  Receipt Date: 20131224
  Transmission Date: 20140711
  Serious: Yes (Other)
  Sender: FDA-Public Use
  Company Number: None

PATIENT
  Age: 73 Year
  Sex: Female
  Weight: 63.5 kg

DRUGS (4)
  1. AZACITIDINE [Suspect]
     Indication: MYELODYSPLASTIC SYNDROME
     Dosage: 130 MG, QD X7 EVERY 28D, INTRAVENOUS
     Route: 042
     Dates: start: 20130924, end: 20131210
  2. AZACITIDINE [Suspect]
     Indication: PANCYTOPENIA
     Dosage: 130 MG, QD X7 EVERY 28D, INTRAVENOUS
     Route: 042
     Dates: start: 20130924, end: 20131210
  3. GRANISETRON IV [Concomitant]
  4. DEXAMETHASONE IV [Concomitant]

REACTIONS (2)
  - Trismus [None]
  - Oral discomfort [None]
